FAERS Safety Report 21951926 (Version 1)
Quarter: 2023Q1

REPORT INFORMATION
  Report Type: Report from Study
  Country: US (occurrence: US)
  Receive Date: 20230203
  Receipt Date: 20230203
  Transmission Date: 20230418
  Serious: No
  Sender: FDA-Public Use
  Company Number: US-EXELIXIS-CABO-21047780

PATIENT
  Age: 59 Year
  Sex: Male

DRUGS (2)
  1. CABOMETYX [Suspect]
     Active Substance: CABOZANTINIB S-MALATE
     Indication: Product used for unknown indication
     Dosage: 60 MG, QD
     Route: 048
     Dates: start: 202101
  2. CABOMETYX [Suspect]
     Active Substance: CABOZANTINIB S-MALATE
     Dosage: 40 MG, QD
     Route: 048
     Dates: start: 20211229

REACTIONS (10)
  - Adverse drug reaction [Unknown]
  - Hair colour changes [Unknown]
  - Gastrooesophageal reflux disease [Unknown]
  - Diarrhoea [Unknown]
  - Palmar-plantar erythrodysaesthesia syndrome [Unknown]
  - Fatigue [Unknown]
  - Vomiting [Unknown]
  - Decreased appetite [Unknown]
  - Weight decreased [Unknown]
  - Nasal disorder [Unknown]

NARRATIVE: CASE EVENT DATE: 20220101
